FAERS Safety Report 26202391 (Version 1)
Quarter: 2025Q4

REPORT INFORMATION
  Report Type: Spontaneous
  Country: GB (occurrence: GB)
  Receive Date: 20251226
  Receipt Date: 20251226
  Transmission Date: 20260118
  Serious: Yes (Other)
  Sender: SHILPA MEDICARE LIMITED
  Company Number: GB-GSK-GB2025155348

PATIENT

DRUGS (3)
  1. BORTEZOMIB [Suspect]
     Active Substance: BORTEZOMIB
     Indication: Product used for unknown indication
     Dosage: UNK
     Dates: start: 20250909
  2. BELANTAMAB MAFODOTIN [Suspect]
     Active Substance: BELANTAMAB MAFODOTIN
     Indication: Plasma cell myeloma
     Dosage: UNK
     Dates: start: 20250919
  3. DEXAMETHASONE [Suspect]
     Active Substance: DEXAMETHASONE
     Indication: Plasma cell myeloma
     Dosage: UNK
     Dates: start: 20250919

REACTIONS (4)
  - Punctate keratitis [Recovering/Resolving]
  - Corneal epithelium defect [Recovering/Resolving]
  - Visual acuity reduced [Recovering/Resolving]
  - Keratopathy [Recovering/Resolving]

NARRATIVE: CASE EVENT DATE: 20251113
